FAERS Safety Report 7273662-1 (Version None)
Quarter: 2011Q1

REPORT INFORMATION
  Report Type: 
  Country: None (occurrence: None)
  Receive Date: 20110203
  Receipt Date: 20110127
  Transmission Date: 20110831
  Serious: Yes (Other)
  Sender: FDA-Public Use
  Company Number: US-GENENTECH-311356

PATIENT
  Sex: Female
  Weight: 88.435 kg

DRUGS (9)
  1. ZYRTEC [Concomitant]
     Indication: PRURITUS
     Dosage: UNK
  2. CEPHALOSPORIN NOS [Concomitant]
     Indication: PRODUCT USED FOR UNKNOWN INDICATION
  3. PROAIR HFA [Concomitant]
     Indication: ASTHMA
     Dosage: UNK
  4. IBUPROFEN [Concomitant]
     Indication: PAIN
  5. RANITIDINE [Concomitant]
     Indication: URTICARIA CHRONIC
     Dosage: UNK
     Route: 048
  6. XOLAIR [Suspect]
     Indication: ASTHMA
     Dosage: 2 UNK, Q2W
     Route: 058
     Dates: start: 20100311
  7. TRIAMCINOLONE [Concomitant]
     Indication: DERMATITIS ATOPIC
     Dosage: 10 MG, BID
  8. BENADRYL [Concomitant]
     Indication: PRODUCT USED FOR UNKNOWN INDICATION
  9. DOXEPIN HCL [Concomitant]
     Indication: PRODUCT USED FOR UNKNOWN INDICATION

REACTIONS (5)
  - URTICARIA [None]
  - THROAT TIGHTNESS [None]
  - DYSPNOEA [None]
  - PRURITUS [None]
  - RASH [None]
